FAERS Safety Report 5241622-8 (Version None)
Quarter: 2007Q1

REPORT INFORMATION
  Report Type: 
  Country: None (occurrence: None)
  Receive Date: 20070215
  Receipt Date: 20070215
  Transmission Date: 20070707
  Serious: Yes (Disabling, Other)
  Sender: FDA-Public Use
  Company Number: None

PATIENT
  Age: 28 Year
  Sex: Male
  Weight: 90.7194 kg

DRUGS (1)
  1. ZYPREXA [Suspect]
     Indication: SCHIZOPHRENIA, PARANOID TYPE
     Dosage: 10 MILLIGRAMS  ONE DAILY
     Dates: start: 19960314, end: 20070214

REACTIONS (8)
  - BACK PAIN [None]
  - BONE PAIN [None]
  - CONTUSION [None]
  - DEPRESSED MOOD [None]
  - PAIN [None]
  - SOMNOLENCE [None]
  - THINKING ABNORMAL [None]
  - TREMOR [None]
